FAERS Safety Report 7694628-3 (Version None)
Quarter: 2011Q3

REPORT INFORMATION
  Report Type: 
  Country: None (occurrence: None)
  Receive Date: 20110816
  Receipt Date: 20110801
  Transmission Date: 20111222
  Serious: Yes (Hospitalization, Other)
  Sender: FDA-Public Use
  Company Number: DSU-2011-03381

PATIENT
  Sex: Male
  Weight: 95.2554 kg

DRUGS (4)
  1. BENICAR [Suspect]
     Indication: HYPERTENSION
     Dosage: 10. 5 MG, PER ORAL
     Route: 048
     Dates: end: 20081001
  2. BENICAR [Suspect]
     Indication: HYPERTENSION
     Dosage: 10. 5 MG, PER ORAL
     Route: 048
     Dates: start: 20070410, end: 20090101
  3. BENICAR [Suspect]
     Indication: HYPERTENSION
     Dosage: 10. 5 MG, PER ORAL
     Route: 048
     Dates: start: 20081001
  4. ALLEGRA-D 12 HOUR (PSEUDOEPHEDRINE HYDROCHLORIDE FEXOFENADYNE HYDROCHL [Concomitant]

REACTIONS (17)
  - PROTEIN URINE [None]
  - EYE DISORDER [None]
  - FLANK PAIN [None]
  - SURGERY [None]
  - KIDNEY INFECTION [None]
  - HEPATIC CYST [None]
  - NOCTURIA [None]
  - BLINDNESS UNILATERAL [None]
  - POLLAKIURIA [None]
  - RENAL FAILURE [None]
  - BLINDNESS TRANSIENT [None]
  - URINE FLOW DECREASED [None]
  - MULTIPLE INJURIES [None]
  - MALAISE [None]
  - NAUSEA [None]
  - MUSCULOSKELETAL PAIN [None]
  - PROSTATOMEGALY [None]
